FAERS Safety Report 20138419 (Version 2)
Quarter: 2022Q1

REPORT INFORMATION
  Report Type: Spontaneous
  Country: AU (occurrence: None)
  Receive Date: 20211202
  Receipt Date: 20220101
  Transmission Date: 20220424
  Serious: Yes (Hospitalization)
  Sender: FDA-Public Use
  Company Number: AU-ROCHE-2969392

PATIENT
  Age: 23 Year
  Sex: Male

DRUGS (1)
  1. EMICIZUMAB [Suspect]
     Active Substance: EMICIZUMAB
     Indication: Factor VIII deficiency
     Dosage: FORTNIGHTLY DOSING
     Route: 065

REACTIONS (7)
  - Traumatic haematoma [Unknown]
  - Foreign body in gastrointestinal tract [Unknown]
  - Pyrexia [Unknown]
  - Peritonitis [Unknown]
  - Haemoglobin decreased [Unknown]
  - Intestinal haematoma [Unknown]
  - Rectal perforation [Unknown]

NARRATIVE: CASE EVENT DATE: 20211110
